FAERS Safety Report 23201709 (Version 1)
Quarter: 2023Q4

REPORT INFORMATION
  Report Type: Spontaneous
  Country: US (occurrence: None)
  Receive Date: 20231118
  Receipt Date: 20231118
  Transmission Date: 20240110
  Serious: Yes (Other)
  Sender: FDA-Public Use
  Company Number: None

PATIENT
  Age: 59 Year
  Sex: Male
  Weight: 117 kg

DRUGS (17)
  1. OZEMPIC [Suspect]
     Active Substance: SEMAGLUTIDE
     Indication: Type 2 diabetes mellitus
     Dosage: 0.5 INJECTION ONCE PER WEEK SUBCUTANEOUS?
     Route: 058
  2. Albuterol Sulfate HFA 108 (90 Base) [Concomitant]
  3. AMLODIPINE BESYLATE [Concomitant]
     Active Substance: AMLODIPINE BESYLATE
  4. ASPIRIN [Concomitant]
     Active Substance: ASPIRIN
  5. Atorvastatin Calcium 10MG [Concomitant]
  6. CHLORTHALIDONE [Concomitant]
     Active Substance: CHLORTHALIDONE
  7. CYCLOBENZAPRINE [Concomitant]
     Active Substance: CYCLOBENZAPRINE
  8. Cymbalta 30MG [Concomitant]
  9. DICYCLOMINE [Concomitant]
     Active Substance: DICYCLOMINE HYDROCHLORIDE
  10. FARXIGA [Concomitant]
     Active Substance: DAPAGLIFLOZIN PROPANEDIOL
  11. GABAPENTIN [Concomitant]
     Active Substance: GABAPENTIN
  12. GABAPENTIN [Concomitant]
     Active Substance: GABAPENTIN
  13. LOSARTAN POTASSIUM [Concomitant]
     Active Substance: LOSARTAN POTASSIUM
  14. Metoprolol Succinate 200MG [Concomitant]
  15. TAMSULOSIN [Concomitant]
     Active Substance: TAMSULOSIN
  16. Dexcom G6 Transmitter [Concomitant]
  17. Dexcom t:slim insulin pump [Concomitant]

REACTIONS (1)
  - Appendicitis [None]

NARRATIVE: CASE EVENT DATE: 20231027
